FAERS Safety Report 23864609 (Version 3)
Quarter: 2025Q2

REPORT INFORMATION
  Report Type: Spontaneous
  Country: US (occurrence: US)
  Receive Date: 20240516
  Receipt Date: 20250627
  Transmission Date: 20250717
  Serious: No
  Sender: SANOFI AVENTIS
  Company Number: US-SA-SAC20240509001015

PATIENT
  Age: 7 Year
  Sex: Male

DRUGS (8)
  1. DUPIXENT [Suspect]
     Active Substance: DUPILUMAB
     Indication: Dermatitis atopic
     Dosage: 300 MG, Q4W
     Route: 058
     Dates: start: 202104
  2. DUPIXENT [Suspect]
     Active Substance: DUPILUMAB
     Indication: Asthma
  3. DUPIXENT [Suspect]
     Active Substance: DUPILUMAB
     Indication: Dermatitis allergic
  4. DUPIXENT [Suspect]
     Active Substance: DUPILUMAB
     Indication: Hypocalcaemia
  5. DUPIXENT [Suspect]
     Active Substance: DUPILUMAB
     Indication: Dermatitis
  6. DUPIXENT [Suspect]
     Active Substance: DUPILUMAB
     Indication: Food allergy
  7. DUPIXENT [Suspect]
     Active Substance: DUPILUMAB
     Indication: Plasma protein metabolism disorder
  8. DUPIXENT [Suspect]
     Active Substance: DUPILUMAB
     Indication: Cellulitis

REACTIONS (9)
  - Skin irritation [Unknown]
  - Skin swelling [Unknown]
  - Erythema [Unknown]
  - Dermatitis atopic [Unknown]
  - Asthma [Unknown]
  - Dermatitis allergic [Unknown]
  - Condition aggravated [Unknown]
  - Product use in unapproved indication [Unknown]
  - Off label use [Unknown]

NARRATIVE: CASE EVENT DATE: 20210401
